FAERS Safety Report 17415594 (Version 1)
Quarter: 2020Q1

REPORT INFORMATION
  Report Type: Report from Study
  Country: None (occurrence: US)
  Receive Date: 20200213
  Receipt Date: 20200213
  Transmission Date: 20200409
  Serious: Yes (Other)
  Sender: FDA-Public Use
  Company Number: US-ABBVIE-19K-163-3164947-00

PATIENT
  Age: 70 Year
  Sex: Female

DRUGS (3)
  1. IMBRUVICA [Suspect]
     Active Substance: IBRUTINIB
     Indication: CHRONIC LYMPHOCYTIC LEUKAEMIA
     Dosage: 140 MG, QD
     Route: 048
     Dates: start: 20150615
  2. IMBRUVICA [Suspect]
     Active Substance: IBRUTINIB
     Dosage: 140 MG, TID
     Route: 048
     Dates: start: 201506
  3. IMBRUVICA [Suspect]
     Active Substance: IBRUTINIB
     Route: 048
     Dates: start: 20150616

REACTIONS (14)
  - Nausea [Not Recovered/Not Resolved]
  - Peripheral swelling [Unknown]
  - Dry eye [Unknown]
  - Dyspnoea exertional [Not Recovered/Not Resolved]
  - Myalgia [Unknown]
  - Headache [Not Recovered/Not Resolved]
  - Memory impairment [Unknown]
  - Malaise [Unknown]
  - Platelet count decreased [Not Recovered/Not Resolved]
  - Bone pain [Unknown]
  - Knee arthroplasty [Unknown]
  - Product dose omission [Unknown]
  - Inappropriate schedule of product administration [Unknown]
  - Fatigue [Unknown]

NARRATIVE: CASE EVENT DATE: 201506
